FAERS Safety Report 16022989 (Version 8)
Quarter: 2019Q2

REPORT INFORMATION
  Report Type: Spontaneous
  Country: US (occurrence: US)
  Receive Date: 20190301
  Receipt Date: 20190624
  Transmission Date: 20190711
  Serious: No
  Sender: FDA-Public Use
  Company Number: US-VERTEX PHARMACEUTICALS-2019-001800

PATIENT
  Age: 21 Year
  Sex: Female

DRUGS (8)
  1. SALINE NASAL MIST [Concomitant]
     Dosage: UNK
  2. BAXDELA [Concomitant]
     Active Substance: DELAFLOXACIN MEGLUMINE
     Dosage: 450 MG
  3. BUDESONIDE. [Concomitant]
     Active Substance: BUDESONIDE
     Dosage: 0.25 MG
  4. SYMDEKO [Suspect]
     Active Substance: IVACAFTOR\TEZACAFTOR
     Indication: CYSTIC FIBROSIS
     Dosage: 100MG TEZACAFTOR/150MG IVACAFTOR AM; 150MG IVACAFTOR PM
     Route: 048
     Dates: start: 20190125
  5. PROGESTERONE. [Concomitant]
     Active Substance: PROGESTERONE
     Dosage: UNK
  6. ESTROGEN NOS W/METHYLTESTOSTERONE [Concomitant]
     Dosage: 0.63 MG
  7. TOBRAMYCIN. [Concomitant]
     Active Substance: TOBRAMYCIN
     Dosage: UNK
     Route: 065
     Dates: start: 201901
  8. SINGULAIR [Concomitant]
     Active Substance: MONTELUKAST SODIUM
     Dosage: 10 MG

REACTIONS (7)
  - Dizziness [Unknown]
  - Oropharyngeal pain [Not Recovered/Not Resolved]
  - Sinus congestion [Unknown]
  - Escherichia infection [Unknown]
  - Sinusitis [Not Recovered/Not Resolved]
  - Product dose omission [Recovered/Resolved]
  - Feeling abnormal [Recovered/Resolved]

NARRATIVE: CASE EVENT DATE: 2019
